FAERS Safety Report 13940508 (Version 9)
Quarter: 2022Q1

REPORT INFORMATION
  Report Type: Spontaneous
  Country: US (occurrence: US)
  Receive Date: 20170906
  Receipt Date: 20220309
  Transmission Date: 20220423
  Serious: No
  Sender: FDA-Public Use
  Company Number: US-PFIZER INC-2016356709

PATIENT
  Age: 53 Year
  Sex: Male
  Weight: 95 kg

DRUGS (8)
  1. GENOTROPIN [Suspect]
     Active Substance: SOMATROPIN
     Indication: Hypothalamo-pituitary disorder
     Dosage: 0.6 MG, DAILY (INJECTED INTO DIFFERENT PARTS OF HIS BODY, LIQUID)
     Dates: start: 20160328
  2. GENOTROPIN [Suspect]
     Active Substance: SOMATROPIN
     Indication: Steroid therapy
     Dosage: 0.8 MG, DAILY
     Route: 058
     Dates: start: 2014
  3. GENOTROPIN [Suspect]
     Active Substance: SOMATROPIN
     Indication: Growth hormone deficiency
     Dosage: UNK
  4. GENOTROPIN [Suspect]
     Active Substance: SOMATROPIN
     Indication: Hypopituitarism
     Dosage: 0.8 MG, DAILY
  5. GENOTROPIN [Suspect]
     Active Substance: SOMATROPIN
     Dosage: 0.6 MG, DAILY (7 DAYS A WEEK)
     Dates: start: 20160421
  6. GENOTROPIN [Suspect]
     Active Substance: SOMATROPIN
     Dosage: 0.08 MG, 1X/DAY
     Dates: start: 2016
  7. LIPITOR [Concomitant]
     Active Substance: ATORVASTATIN CALCIUM
     Indication: Blood cholesterol increased
     Dosage: 20 ML, 1X/DAY
     Dates: start: 2007
  8. LISINOPRIL [Concomitant]
     Active Substance: LISINOPRIL
     Indication: Hypertension
     Dosage: 10 ML, 1X/DAY
     Dates: start: 2007

REACTIONS (8)
  - Product dose omission issue [Unknown]
  - Device issue [Unknown]
  - Incorrect dose administered [Unknown]
  - Feeling abnormal [Unknown]
  - Malaise [Unknown]
  - Lethargy [Unknown]
  - Depression [Unknown]
  - Apathy [Unknown]

NARRATIVE: CASE EVENT DATE: 20160718
